FAERS Safety Report 6829980-1 (Version None)
Quarter: 2010Q3

REPORT INFORMATION
  Report Type: 
  Country: None (occurrence: None)
  Receive Date: 20100711
  Receipt Date: 20100413
  Transmission Date: 20110219
  Serious: No
  Sender: FDA-Public Use
  Company Number: US-ALLERGAN-1004850US

PATIENT
  Age: 57 Year
  Sex: Female

DRUGS (8)
  1. LATISSE [Suspect]
     Indication: GROWTH OF EYELASHES
     Dosage: UNK
     Dates: start: 20091001
  2. METFORMIN HCL [Concomitant]
     Indication: GLUCOSE TOLERANCE IMPAIRED
     Dosage: UNK
  3. DIABAN [Concomitant]
     Indication: HYPERTENSION
     Dosage: UNK
  4. CRESTOR [Concomitant]
     Dosage: UNK
  5. ZOLOFT [Concomitant]
     Dosage: UNK
  6. TRILIX [Concomitant]
     Dosage: UNK
  7. OTC ALLERGY MEDICATIONS [Suspect]
     Dosage: UNK
  8. COMBINATIONS OF VITAMINS [Concomitant]
     Dosage: UNK

REACTIONS (2)
  - HAIR GROWTH ABNORMAL [None]
  - MADAROSIS [None]
